FAERS Safety Report 9217316 (Version 1)
Quarter: 2013Q2

REPORT INFORMATION
  Report Type: Spontaneous
  Country: FR (occurrence: FR)
  Receive Date: 20130408
  Receipt Date: 20130408
  Transmission Date: 20140414
  Serious: Yes (Life-Threatening)
  Sender: FDA-Public Use
  Company Number: FR-ROCHE-1207397

PATIENT
  Age: 50 Year
  Sex: Female

DRUGS (2)
  1. ACTILYSE [Suspect]
     Indication: ISCHAEMIC STROKE
     Route: 040
     Dates: start: 20100913, end: 20100913
  2. ACTILYSE [Suspect]
     Dosage: INFUSION PUMP IN 1 HOUR
     Route: 042
     Dates: start: 20100913, end: 20100913

REACTIONS (1)
  - Angioedema [Recovered/Resolved]
